FAERS Safety Report 13048794 (Version 1)
Quarter: 2016Q4

REPORT INFORMATION
  Report Type: Spontaneous
  Country: US (occurrence: US)
  Receive Date: 20161220
  Receipt Date: 20161220
  Transmission Date: 20170207
  Serious: No
  Sender: FDA-Public Use
  Company Number: None

PATIENT
  Age: 46 Year
  Sex: Female

DRUGS (2)
  1. CLONAZEPAM. [Concomitant]
     Active Substance: CLONAZEPAM
  2. TRAMADOL SUN/NORTHSTAR [Suspect]
     Active Substance: TRAMADOL HYDROCHLORIDE
     Indication: PAIN
     Dosage: 50MG; TID PRN; PO
     Route: 048
     Dates: start: 20161117, end: 20161120

REACTIONS (2)
  - Product substitution issue [None]
  - Rash pruritic [None]

NARRATIVE: CASE EVENT DATE: 20161117
